FAERS Safety Report 9896405 (Version 1)
Quarter: 2014Q1

REPORT INFORMATION
  Report Type: Spontaneous
  Country: US (occurrence: US)
  Receive Date: 20140213
  Receipt Date: 20140213
  Transmission Date: 20141002
  Serious: No
  Sender: FDA-Public Use
  Company Number: US-BRISTOL-MYERS SQUIBB COMPANY-19833821

PATIENT
  Age: 63 Year
  Sex: Female

DRUGS (3)
  1. ORENCIA FOR INJ [Suspect]
     Route: 042
  2. PLAQUENIL [Suspect]
  3. BENADRYL [Concomitant]

REACTIONS (4)
  - Drug ineffective [Unknown]
  - Headache [Unknown]
  - Fatigue [Unknown]
  - Pruritus [Unknown]
